FAERS Safety Report 6538751-5 (Version None)
Quarter: 2010Q1

REPORT INFORMATION
  Report Type: 
  Country: None (occurrence: None)
  Receive Date: 20100115
  Receipt Date: 20100105
  Transmission Date: 20100710
  Serious: Yes (Hospitalization, Other)
  Sender: FDA-Public Use
  Company Number: CZ-RANBAXY-2009RR-28260

PATIENT
  Age: 50 Year
  Sex: Female

DRUGS (5)
  1. FENOFIBRATE [Suspect]
     Indication: DRUG USE FOR UNKNOWN INDICATION
     Dosage: 200 MG, UNK
     Route: 065
  2. ATORVASTATIN [Suspect]
     Dosage: 20 MG, QD
     Route: 065
  3. CITALOPRAM [Suspect]
     Dosage: 20 MG, QD
     Route: 065
  4. BISOPROLOL FUMARATE [Concomitant]
     Indication: HYPERTENSION
     Dosage: 10 MG, UNK
  5. RAMIPRIL [Concomitant]
     Indication: HYPERTENSION
     Dosage: 2.5 MG, UNK

REACTIONS (3)
  - DRUG INTERACTION [None]
  - HEPATITIS CHOLESTATIC [None]
  - REFUSAL OF TREATMENT BY PATIENT [None]
